FAERS Safety Report 10831858 (Version 1)
Quarter: 2015Q1

REPORT INFORMATION
  Report Type: Spontaneous
  Country: HU (occurrence: HU)
  Receive Date: 20150219
  Receipt Date: 20150219
  Transmission Date: 20150721
  Serious: Yes (Hospitalization, Other)
  Sender: FDA-Public Use
  Company Number: HU-ELI_LILLY_AND_COMPANY-HU201412007118

PATIENT
  Age: 84 Year
  Sex: Female

DRUGS (9)
  1. FORSTEO [Suspect]
     Active Substance: TERIPARATIDE
     Indication: MULTIPLE FRACTURES
     Dosage: UNK UNK, UNKNOWN
     Route: 065
     Dates: start: 201408, end: 201412
  2. FORSTEO [Suspect]
     Active Substance: TERIPARATIDE
     Dosage: UNK, UNKNOWN
     Route: 065
     Dates: start: 201407
  3. SYNCUMAR [Concomitant]
     Active Substance: ACENOCOUMAROL
     Dosage: UNK, UNKNOWN
     Route: 065
  4. NOOTROPIL [Concomitant]
     Active Substance: PIRACETAM
     Dosage: UNK, UNKNOWN
     Route: 065
  5. NORVASC [Concomitant]
     Active Substance: AMLODIPINE BESYLATE
     Dosage: UNK, UNKNOWN
     Route: 065
  6. RENITEC                            /00935901/ [Concomitant]
     Dosage: 5 MG, UNKNOWN
     Route: 065
  7. FURON                              /00032601/ [Concomitant]
     Active Substance: FUROSEMIDE
     Dosage: UNK, UNKNOWN
     Route: 065
  8. BETALOC                            /00376903/ [Concomitant]
     Dosage: UNK, UNKNOWN
     Route: 065
  9. RANITIDIN [Concomitant]
     Active Substance: RANITIDINE HYDROCHLORIDE
     Dosage: UNK, UNKNOWN
     Route: 065

REACTIONS (1)
  - Renal impairment [Unknown]
